FAERS Safety Report 13619585 (Version 1)
Quarter: 2017Q2

REPORT INFORMATION
  Report Type: Report from Study
  Country: CA (occurrence: CA)
  Receive Date: 20170606
  Receipt Date: 20170606
  Transmission Date: 20170830
  Serious: Yes (Death, Hospitalization, Other)
  Sender: FDA-Public Use
  Company Number: CA-MYLANLABS-2017M1033956

PATIENT

DRUGS (1)
  1. BUDESONIDE. [Suspect]
     Active Substance: BUDESONIDE
     Indication: ASTHMA
     Dosage: 34 PUFFS/DAY X MONTHS
     Route: 055

REACTIONS (4)
  - Cardiac failure [Fatal]
  - Cushing^s syndrome [Fatal]
  - Overdose [Fatal]
  - Adrenal suppression [Fatal]
